FAERS Safety Report 5093643-6 (Version None)
Quarter: 2006Q3

REPORT INFORMATION
  Report Type: 
  Country: None (occurrence: None)
  Receive Date: 20060829
  Receipt Date: 20060814
  Transmission Date: 20061208
  Serious: Yes (Death)
  Sender: FDA-Public Use
  Company Number: 2006S1007662

PATIENT
  Age: 72 Year
  Sex: Male

DRUGS (2)
  1. CLOZAPINE [Suspect]
     Indication: BIPOLAR DISORDER
     Dosage: 100 MG; BID; PO
     Route: 048
     Dates: end: 20060801
  2. CLOZAPINE [Suspect]
     Indication: BIPOLAR DISORDER
     Dosage: 37.5 MG; QD; PO
     Route: 048
     Dates: end: 20060801

REACTIONS (1)
  - ROAD TRAFFIC ACCIDENT [None]
